FAERS Safety Report 6338390-5 (Version None)
Quarter: 2009Q3

REPORT INFORMATION
  Report Type: 
  Country: None (occurrence: None)
  Receive Date: 20090901
  Receipt Date: 20090827
  Transmission Date: 20100115
  Serious: Yes (Congenital Anomaly)
  Sender: FDA-Public Use
  Company Number: US-GDP-09406176

PATIENT

DRUGS (1)
  1. DIFFERIN        (ADAPALENE) GEL 0.3% [Suspect]
     Indication: ACNE
     Dosage: (1 DF QD TRANSPLACENTAL)
     Route: 064
     Dates: start: 20080101, end: 20090401

REACTIONS (3)
  - ABORTION INDUCED [None]
  - DRUG EXPOSURE DURING PREGNANCY [None]
  - PREGNANCY [None]
